FAERS Safety Report 10904377 (Version 2)
Quarter: 2015Q2

REPORT INFORMATION
  Report Type: Spontaneous
  Country: US (occurrence: US)
  Receive Date: 20150311
  Receipt Date: 20150511
  Transmission Date: 20150821
  Serious: Yes (Hospitalization, Other)
  Sender: FDA-Public Use
  Company Number: US-PFIZER INC-2015084191

PATIENT
  Age: 73 Year
  Sex: Female
  Weight: 64 kg

DRUGS (1)
  1. PREMARIN [Suspect]
     Active Substance: ESTROGENS, CONJUGATED
     Indication: CERVIX DISORDER
     Dosage: UNK, ONLY TWO TIMES
     Dates: start: 201308

REACTIONS (10)
  - Cystitis [Unknown]
  - Herpes zoster [Unknown]
  - Weight increased [Unknown]
  - Seizure [Unknown]
  - Fluid retention [Unknown]
  - Joint swelling [Unknown]
  - Loss of consciousness [Unknown]
  - Influenza [Unknown]
  - Cerebrovascular accident [Unknown]
  - Hypoacusis [Recovered/Resolved with Sequelae]

NARRATIVE: CASE EVENT DATE: 2013
